FAERS Safety Report 7671139-2 (Version None)
Quarter: 2011Q3

REPORT INFORMATION
  Report Type: 
  Country: None (occurrence: None)
  Receive Date: 20110809
  Receipt Date: 20110805
  Transmission Date: 20111222
  Serious: Yes (Hospitalization)
  Sender: FDA-Public Use
  Company Number: FR-SANOFI-AVENTIS-2011SA037446

PATIENT
  Age: 76 Year
  Sex: Female

DRUGS (10)
  1. BISOPROLOL FUMARATE [Concomitant]
     Route: 065
  2. NEURONTIN [Concomitant]
     Route: 065
  3. ALLOPURINOL [Concomitant]
     Route: 065
  4. LOVENOX [Concomitant]
     Route: 065
  5. RIFADIN [Suspect]
     Route: 048
     Dates: start: 20110401, end: 20110503
  6. CORDARONE [Concomitant]
     Route: 065
  7. FUCIDINE CAP [Suspect]
     Route: 048
     Dates: start: 20110429, end: 20110503
  8. ACETAMINOPHEN [Concomitant]
     Route: 065
  9. IRBESARTAN AND HYDROCHLOROTHIAZIDE [Concomitant]
     Route: 065
  10. CORVASAL [Concomitant]
     Route: 065

REACTIONS (4)
  - CHOLESTASIS [None]
  - JAUNDICE [None]
  - BLOOD ALKALINE PHOSPHATASE INCREASED [None]
  - HYPERBILIRUBINAEMIA [None]
